FAERS Safety Report 24751187 (Version 1)
Quarter: 2024Q4

REPORT INFORMATION
  Report Type: Spontaneous
  Country: US (occurrence: US)
  Receive Date: 20241219
  Receipt Date: 20241219
  Transmission Date: 20250115
  Serious: Yes (Other)
  Sender: AMGEN
  Company Number: US-AMGEN-USASP2024245725

PATIENT
  Age: 66 Year
  Sex: Female

DRUGS (10)
  1. PREDNISONE [Suspect]
     Active Substance: PREDNISONE
     Indication: Thyroid B-cell lymphoma
     Dosage: UNK
     Route: 065
  2. PREDNISONE [Suspect]
     Active Substance: PREDNISONE
     Dosage: UNK (FOUR CYCLES)
     Route: 065
  3. RITUXIMAB [Suspect]
     Active Substance: RITUXIMAB
     Indication: Thyroid B-cell lymphoma
     Dosage: UNK (FOUR CYCLES)
     Route: 065
  4. ETOPOSIDE [Concomitant]
     Active Substance: ETOPOSIDE
     Indication: Thyroid B-cell lymphoma
     Dosage: UNK (FOUR CYCLES)
     Route: 065
  5. VINCRISTINE [Concomitant]
     Active Substance: VINCRISTINE
     Indication: Thyroid B-cell lymphoma
     Dosage: UNK (FOUR CYCLES)
     Route: 065
  6. CYCLOPHOSPHAMIDE [Concomitant]
     Active Substance: CYCLOPHOSPHAMIDE
     Indication: Thyroid B-cell lymphoma
     Dosage: UNK (FOUR CYCLES)
  7. DOXORUBICIN [Concomitant]
     Active Substance: DOXORUBICIN
     Indication: Thyroid B-cell lymphoma
     Dosage: UNK (FOUR CYCLES)
  8. IBRUTINIB [Concomitant]
     Active Substance: IBRUTINIB
     Indication: Thyroid B-cell lymphoma
     Route: 065
  9. IBRUTINIB [Concomitant]
     Active Substance: IBRUTINIB
     Indication: Prophylaxis
  10. METHOTREXATE [Concomitant]
     Active Substance: METHOTREXATE
     Indication: Thyroid B-cell lymphoma
     Dosage: UNK (CYCLES 3-6)
     Route: 029

REACTIONS (2)
  - Thyroid B-cell lymphoma [Recovered/Resolved]
  - Vocal cord paralysis [Unknown]
